FAERS Safety Report 7833905-X (Version None)
Quarter: 2011Q4

REPORT INFORMATION
  Report Type: 
  Country: None (occurrence: None)
  Receive Date: 20111024
  Receipt Date: 20111012
  Transmission Date: 20120403
  Serious: Yes (Hospitalization)
  Sender: FDA-Public Use
  Company Number: DE-ROCHE-1005934

PATIENT
  Age: 73 Year
  Sex: Female

DRUGS (2)
  1. HERCEPTIN [Suspect]
     Indication: BREAST CANCER METASTATIC
     Route: 065
     Dates: start: 20110921
  2. PACLITAXEL [Concomitant]

REACTIONS (3)
  - BLISTER [None]
  - PRURITUS [None]
  - ERYTHEMA [None]
